FAERS Safety Report 10959828 (Version 1)
Quarter: 2015Q1

REPORT INFORMATION
  Report Type: Spontaneous
  Country: US (occurrence: None)
  Receive Date: 20150326
  Receipt Date: 20150326
  Transmission Date: 20150721
  Serious: Yes (Hospitalization)
  Sender: FDA-Public Use
  Company Number: None

PATIENT
  Age: 51 Year
  Sex: Male
  Weight: 82.82 kg

DRUGS (3)
  1. ELOXATIN [Suspect]
     Active Substance: OXALIPLATIN
     Dates: end: 20150310
  2. 5-FLUOROURACIL (5-FU) [Suspect]
     Active Substance: FLUOROURACIL
     Dates: end: 20150310
  3. LEUCOVORIN CALCIUM. [Suspect]
     Active Substance: LEUCOVORIN CALCIUM
     Dates: end: 20150310

REACTIONS (1)
  - Cholelithiasis [None]

NARRATIVE: CASE EVENT DATE: 20150311
